FAERS Safety Report 4956568-X (Version None)
Quarter: 2006Q1

REPORT INFORMATION
  Report Type: 
  Country: None (occurrence: None)
  Receive Date: 20060329
  Receipt Date: 20050218
  Transmission Date: 20060701
  Serious: Yes (Hospitalization, Disabling, Other)
  Sender: FDA-Public Use
  Company Number: US-MERCK-0502USA02710

PATIENT
  Age: 33 Year
  Sex: Female
  Weight: 133 kg

DRUGS (8)
  1. VIOXX [Suspect]
     Indication: LIMB INJURY
     Route: 048
     Dates: start: 20030827, end: 20031101
  2. MOTRIN [Concomitant]
     Route: 065
  3. VICODIN [Concomitant]
     Route: 065
  4. FLEXERIL [Concomitant]
     Route: 065
  5. NAPROSYN [Concomitant]
     Route: 065
  6. DYAZIDE [Concomitant]
     Route: 065
  7. PROVERA [Concomitant]
     Route: 065
  8. LASIX [Concomitant]
     Route: 065

REACTIONS (12)
  - ADENOMYOSIS [None]
  - AORTIC VALVE INCOMPETENCE [None]
  - BLOOD PRESSURE INCREASED [None]
  - CHEST PAIN [None]
  - ELECTROCARDIOGRAM ABNORMAL [None]
  - HYPERTENSION [None]
  - INCISION SITE HAEMORRHAGE [None]
  - LIMB INJURY [None]
  - MYOCARDIAL INFARCTION [None]
  - NECK PAIN [None]
  - SHOULDER PAIN [None]
  - UTERINE LEIOMYOMA [None]
